FAERS Safety Report 15628468 (Version 1)
Quarter: 2018Q4

REPORT INFORMATION
  Report Type: Report from Study
  Country: US (occurrence: US)
  Receive Date: 20181116
  Receipt Date: 20181116
  Transmission Date: 20190205
  Serious: Yes (Hospitalization, Other)
  Sender: FDA-Public Use
  Company Number: US-SHIRE-US201843945

PATIENT
  Age: 40 Year
  Sex: Male

DRUGS (1)
  1. GATTEX [Suspect]
     Active Substance: TEDUGLUTIDE\WATER
     Indication: SHORT-BOWEL SYNDROME
     Dosage: 0.36 UNKNOWN, UNKNOWN
     Route: 065
     Dates: start: 20180701

REACTIONS (4)
  - Blood magnesium decreased [Unknown]
  - Pancreatitis [Unknown]
  - Blood potassium decreased [Unknown]
  - Dehydration [Unknown]

NARRATIVE: CASE EVENT DATE: 20181102
